FAERS Safety Report 9414698 (Version 4)
Quarter: 2014Q2

REPORT INFORMATION
  Report Type: Spontaneous
  Country: GB (occurrence: GB)
  Receive Date: 20130723
  Receipt Date: 20140515
  Transmission Date: 20141212
  Serious: Yes (Life-Threatening, Other)
  Sender: FDA-Public Use
  Company Number: PHHY2013GB076495

PATIENT
  Age: 14 Year
  Sex: Female
  Weight: 51 kg

DRUGS (4)
  1. TOPIRAMATE [Suspect]
     Indication: PRODUCT USED FOR UNKNOWN INDICATION
     Dosage: 125 MG, BID
     Route: 048
     Dates: start: 2013
  2. TOPIRAMATE [Suspect]
     Route: 048
     Dates: start: 2013
  3. KEPPRA [Suspect]
     Indication: PRODUCT USED FOR UNKNOWN INDICATION
     Route: 048
     Dates: start: 2013, end: 2013
  4. KEPPRA [Suspect]
     Dosage: 1250 MG, BID
     Route: 048
     Dates: start: 201306, end: 2013

REACTIONS (4)
  - Suicidal ideation [Recovering/Resolving]
  - Decreased appetite [Recovering/Resolving]
  - Depression [Recovering/Resolving]
  - Product quality issue [Unknown]
